FAERS Safety Report 9897681 (Version 2)
Quarter: 2014Q1

REPORT INFORMATION
  Report Type: Spontaneous
  Country: US (occurrence: US)
  Receive Date: 20140214
  Receipt Date: 20140214
  Transmission Date: 20141002
  Serious: No
  Sender: FDA-Public Use
  Company Number: US-DRREDDYS-USA/USA/13/0027824

PATIENT
  Age: 72 Year
  Sex: Female

DRUGS (2)
  1. ONDANSETRON 8 MG [Suspect]
     Indication: NAUSEA
     Dosage: 3 TABLETS A DAY
     Route: 048
  2. PANTOPRAZOLE SODIUM DR TABLETS 20MG + 40MG [Concomitant]
     Indication: GASTROOESOPHAGEAL REFLUX DISEASE
     Route: 065

REACTIONS (2)
  - Dysgeusia [Not Recovered/Not Resolved]
  - Weight decreased [Not Recovered/Not Resolved]
